FAERS Safety Report 7536792-2 (Version None)
Quarter: 2011Q2

REPORT INFORMATION
  Report Type: 
  Country: None (occurrence: None)
  Receive Date: 20110603
  Receipt Date: 20110519
  Transmission Date: 20111010
  Serious: Yes (Hospitalization)
  Sender: FDA-Public Use
  Company Number: 2011MA004891

PATIENT
  Age: 57 Year
  Sex: Male

DRUGS (4)
  1. OTC COLD MEDICATION (NO PREF. NAME) [Suspect]
     Dates: start: 20060201
  2. CEFPODOXINE (PROXETIL) [Concomitant]
  3. CARBAMAZEPINE [Suspect]
     Dates: start: 20060127, end: 20060313
  4. CLONAZEPAM [Concomitant]

REACTIONS (10)
  - PROTEIN TOTAL DECREASED [None]
  - PYREXIA [None]
  - BLOOD ALBUMIN DECREASED [None]
  - GAMMA-GLUTAMYLTRANSFERASE INCREASED [None]
  - BLOOD UREA INCREASED [None]
  - DRUG RASH WITH EOSINOPHILIA AND SYSTEMIC SYMPTOMS [None]
  - ALANINE AMINOTRANSFERASE INCREASED [None]
  - DISSEMINATED INTRAVASCULAR COAGULATION [None]
  - THROMBOCYTOPENIA [None]
  - RENAL IMPAIRMENT [None]
